FAERS Safety Report 7456826-3 (Version None)
Quarter: 2011Q2

REPORT INFORMATION
  Report Type: 
  Country: None (occurrence: None)
  Receive Date: 20110504
  Receipt Date: 20110426
  Transmission Date: 20111010
  Serious: Yes (Hospitalization)
  Sender: FDA-Public Use
  Company Number: US-BIOGENIDEC-2011BI016100

PATIENT
  Age: 52 Year
  Sex: Female

DRUGS (2)
  1. AVONEX [Suspect]
     Indication: MULTIPLE SCLEROSIS
     Route: 030
     Dates: start: 19980101
  2. STEROIDS (NOS) [Concomitant]

REACTIONS (7)
  - PANCREATITIS [None]
  - BENIGN HEPATIC NEOPLASM [None]
  - OVERDOSE [None]
  - BENIGN BILIARY NEOPLASM [None]
  - MULTIPLE SCLEROSIS RELAPSE [None]
  - BENIGN LUNG NEOPLASM [None]
  - BENIGN PANCREATIC NEOPLASM [None]
